FAERS Safety Report 14539355 (Version 2)
Quarter: 2023Q2

REPORT INFORMATION
  Report Type: Spontaneous
  Country: US (occurrence: US)
  Receive Date: 20180216
  Receipt Date: 20230414
  Transmission Date: 20230721
  Serious: Yes (Death, Hospitalization)
  Sender: FDA-Public Use
  Company Number: US-JNJFOC-20180130843

PATIENT
  Age: 54 Year
  Sex: Female
  Weight: 49 kg

DRUGS (6)
  1. LOPERAMIDE HYDROCHLORIDE [Suspect]
     Active Substance: LOPERAMIDE HYDROCHLORIDE
     Indication: Product used for unknown indication
     Route: 065
  2. REMODULIN [Suspect]
     Active Substance: TREPROSTINIL
     Indication: Pulmonary arterial hypertension
     Dosage: 51 NG/KG/MIN
     Dates: start: 20130227
  3. REMODULIN [Suspect]
     Active Substance: TREPROSTINIL
     Dates: start: 20171218
  4. LOMOTIL [Concomitant]
     Active Substance: ATROPINE SULFATE\DIPHENOXYLATE HYDROCHLORIDE
     Route: 065
  5. SILDENAFIL CITRATE [Concomitant]
     Active Substance: SILDENAFIL CITRATE
     Route: 065
  6. OPSUMIT [Concomitant]
     Active Substance: MACITENTAN
     Route: 065

REACTIONS (5)
  - Myocardial infarction [Fatal]
  - Diarrhoea [Unknown]
  - Oral discomfort [Unknown]
  - Dyspepsia [Unknown]
  - Recalled product administered [Unknown]
